FAERS Safety Report 6573872-2 (Version None)
Quarter: 2010Q1

REPORT INFORMATION
  Report Type: 
  Country: None (occurrence: None)
  Receive Date: 20100208
  Receipt Date: 20100129
  Transmission Date: 20100710
  Serious: Yes (Life-Threatening, Hospitalization)
  Sender: FDA-Public Use
  Company Number: FR-KINGPHARMUSA00001-K201000047

PATIENT
  Age: 23 Year
  Sex: Female

DRUGS (4)
  1. ALTACE [Suspect]
     Indication: HYPERTENSION
     Dosage: 2.5 MG, QD
     Route: 048
     Dates: start: 20090501, end: 20091128
  2. METAMIZOLE SODIUM [Suspect]
     Indication: PROCEDURAL PAIN
     Dosage: 500 MG, UNK
     Route: 048
     Dates: start: 20091109, end: 20091127
  3. METAMIZOLE SODIUM [Suspect]
     Dosage: 500 MG, UNK
     Route: 048
     Dates: start: 20090920, end: 20091101
  4. CHLORMADINONE ACETATE TAB [Concomitant]
     Dosage: UNK
     Dates: start: 20070101

REACTIONS (14)
  - AGRANULOCYTOSIS [None]
  - ANTITHROMBIN III INCREASED [None]
  - ASTHENIA [None]
  - ATELECTASIS [None]
  - FATIGUE [None]
  - GENERAL PHYSICAL HEALTH DETERIORATION [None]
  - HEPATIC FAILURE [None]
  - INFLAMMATION [None]
  - MUCOSAL INFLAMMATION [None]
  - NEUTROPENIA [None]
  - PAIN [None]
  - PROTHROMBIN TIME PROLONGED [None]
  - PYREXIA [None]
  - STAPHYLOCOCCAL INFECTION [None]
